FAERS Safety Report 6998430-7 (Version None)
Quarter: 2010Q3

REPORT INFORMATION
  Report Type: 
  Country: None (occurrence: None)
  Receive Date: 20100920
  Receipt Date: 20100908
  Transmission Date: 20110219
  Serious: Yes (Other)
  Sender: FDA-Public Use
  Company Number: JP-JNJFOC-20100904053

PATIENT
  Age: 51 Year
  Sex: Female

DRUGS (2)
  1. REMICADE [Suspect]
     Indication: RHEUMATOID ARTHRITIS
     Dosage: TOTAL OF 1 DOSE ADMINISTERED
     Route: 042
  2. TOCILIZUMAB [Concomitant]
     Indication: RHEUMATOID ARTHRITIS

REACTIONS (2)
  - BREAST CANCER [None]
  - DRUG INEFFECTIVE [None]
